FAERS Safety Report 5015937-2 (Version None)
Quarter: 2006Q2

REPORT INFORMATION
  Report Type: 
  Country: None (occurrence: None)
  Receive Date: 20060426
  Receipt Date: 20051010
  Transmission Date: 20061013
  Serious: Yes (Hospitalization)
  Sender: FDA-Public Use
  Company Number: US153704

PATIENT
  Age: 46 Year
  Sex: Male

DRUGS (2)
  1. SENSIPAR [Suspect]
     Indication: HYPERPARATHYROIDISM SECONDARY
     Dosage: 30 MG, 1 IN 1 DAYS, PO
     Route: 048
     Dates: start: 20050912, end: 20050916
  2. SEVELAMER HCL [Concomitant]

REACTIONS (2)
  - DIZZINESS [None]
  - HIP FRACTURE [None]
